FAERS Safety Report 9246734 (Version 2)
Quarter: 2013Q2

REPORT INFORMATION
  Report Type: Report from Study
  Country: FR (occurrence: FR)
  Receive Date: 20130422
  Receipt Date: 20130424
  Transmission Date: 20140414
  Serious: Yes (Life-Threatening, Hospitalization)
  Sender: FDA-Public Use
  Company Number: FR-TEVA-396514ISR

PATIENT
  Age: 39 Year
  Sex: Male
  Weight: 72 kg

DRUGS (3)
  1. EFFENTORA [Suspect]
     Dosage: 400 MICROGRAM DAILY;
     Route: 002
     Dates: start: 20130311, end: 20130325
  2. MORPHINE [Suspect]
     Route: 048
  3. MORPHINE [Suspect]
     Route: 042

REACTIONS (3)
  - Small intestinal perforation [Not Recovered/Not Resolved]
  - Peritonitis [Not Recovered/Not Resolved]
  - Intestinal obstruction [Unknown]
